FAERS Safety Report 9699392 (Version 2)
Quarter: 2013Q4

REPORT INFORMATION
  Report Type: Spontaneous
  Country: US (occurrence: US)
  Receive Date: 20131120
  Receipt Date: 20131120
  Transmission Date: 20140711
  Serious: No
  Sender: FDA-Public Use
  Company Number: US-TEVA-363541USA

PATIENT
  Sex: 0

DRUGS (2)
  1. PARAGARD 380A [Suspect]
     Indication: CONTRACEPTION
     Route: 015
     Dates: start: 20121106, end: 20121106
  2. PARAGARD 380A [Suspect]
     Route: 015
     Dates: start: 20121106

REACTIONS (3)
  - Abdominal pain lower [Unknown]
  - Vaginal haemorrhage [Unknown]
  - Discomfort [Unknown]
